FAERS Safety Report 7091791-2 (Version None)
Quarter: 2010Q4

REPORT INFORMATION
  Report Type: 
  Country: None (occurrence: None)
  Receive Date: 20101109
  Receipt Date: 20101101
  Transmission Date: 20110411
  Serious: No
  Sender: FDA-Public Use
  Company Number: US-B.I. PHARMACEUTICALS,INC./RIDGEFIELD-2010-BP-12295BP

PATIENT
  Sex: Male

DRUGS (1)
  1. SPIRIVA [Suspect]
     Indication: OBSTRUCTIVE AIRWAYS DISORDER
     Dosage: 18 MCG
     Route: 055
     Dates: start: 20101029

REACTIONS (1)
  - PRODUCTIVE COUGH [None]
